FAERS Safety Report 4489971-5 (Version None)
Quarter: 2004Q4

REPORT INFORMATION
  Report Type: 
  Country: None (occurrence: None)
  Receive Date: 20041101
  Receipt Date: 20041021
  Transmission Date: 20050328
  Serious: Yes (Other)
  Sender: FDA-Public Use
  Company Number: GB-GLAXOSMITHKLINE-B0349181A

PATIENT
  Age: 71 Year
  Sex: Female
  Weight: 47.5 kg

DRUGS (5)
  1. CEFUROXIME SODIUM [Suspect]
     Indication: CHRONIC OBSTRUCTIVE AIRWAYS DISEASE EXACERBATED
     Dosage: 250MG TWICE PER DAY
     Route: 048
     Dates: start: 20041001, end: 20041004
  2. COMBIVENT [Concomitant]
     Indication: CHRONIC OBSTRUCTIVE AIRWAYS DISEASE
     Dosage: 2UNIT FOUR TIMES PER DAY
     Dates: start: 19990101
  3. ASPIRIN [Concomitant]
     Indication: HYPERTENSION
     Dosage: 75MG PER DAY
     Route: 048
     Dates: start: 19970101
  4. FLUTICASONE PROPIONATE [Concomitant]
     Indication: CHRONIC OBSTRUCTIVE AIRWAYS DISEASE
     Dosage: 250MCG TWICE PER DAY
     Dates: start: 20000101
  5. ENALAPRIL [Concomitant]
     Indication: HYPERTENSION
     Dosage: 10MG PER DAY
     Route: 048
     Dates: start: 19970101

REACTIONS (2)
  - BRONCHOSPASM [None]
  - SPUTUM RETENTION [None]
